FAERS Safety Report 8757817 (Version 2)
Quarter: 2012Q4

REPORT INFORMATION
  Report Type: 
  Country: US (occurrence: US)
  Receive Date: 20120828
  Receipt Date: 20120830
  Transmission Date: 20130627
  Serious: No
  Sender: FDA-Public Use
  Company Number: US-BAYER-2012-088573

PATIENT
  Age: 65 Year
  Sex: Male

DRUGS (1)
  1. GADAVIST [Suspect]
     Indication: HEPATITIS C
     Dosage: 10 ml, ONCE
     Dates: start: 20120822, end: 20120822

REACTIONS (2)
  - Nausea [None]
  - Vomiting [None]
